FAERS Safety Report 13928814 (Version 1)
Quarter: 2017Q3

REPORT INFORMATION
  Report Type: Spontaneous
  Country: IT (occurrence: IT)
  Receive Date: 20170901
  Receipt Date: 20170901
  Transmission Date: 20171127
  Serious: Yes (Other)
  Sender: FDA-Public Use
  Company Number: IT-BRISTOL-MYERS SQUIBB COMPANY-BMS-2017-062656

PATIENT
  Age: 92 Year
  Sex: Female

DRUGS (1)
  1. WARFARIN SODIUM. [Suspect]
     Active Substance: WARFARIN SODIUM
     Indication: PRODUCT USED FOR UNKNOWN INDICATION
     Route: 065

REACTIONS (6)
  - Haematemesis [Not Recovered/Not Resolved]
  - Pulmonary embolism [Unknown]
  - Duodenal ulcer [Unknown]
  - Melaena [Not Recovered/Not Resolved]
  - Anaemia [Unknown]
  - International normalised ratio fluctuation [Unknown]

NARRATIVE: CASE EVENT DATE: 20170711
